FAERS Safety Report 23863308 (Version 1)
Quarter: 2024Q2

REPORT INFORMATION
  Report Type: Report from Study
  Country: US (occurrence: US)
  Receive Date: 20240516
  Receipt Date: 20240516
  Transmission Date: 20240716
  Serious: Yes (Other)
  Sender: FDA-Public Use
  Company Number: US-AMGEN-USASL2024092998

PATIENT
  Age: 46 Year
  Sex: Male

DRUGS (1)
  1. OTEZLA [Suspect]
     Active Substance: APREMILAST
     Indication: Psoriasis
     Dosage: 30 MILLIGRAM, BID
     Route: 065
     Dates: start: 202209, end: 202312

REACTIONS (5)
  - Psoriatic arthropathy [Unknown]
  - Nail deformation [Unknown]
  - Drug ineffective [Unknown]
  - False positive investigation result [Unknown]
  - False positive tuberculosis test [Unknown]
